FAERS Safety Report 10189260 (Version 1)
Quarter: 2014Q2

REPORT INFORMATION
  Report Type: Spontaneous
  Country: JO (occurrence: None)
  Receive Date: 20140520
  Receipt Date: 20140520
  Transmission Date: 20141212
  Serious: Yes (Other)
  Sender: FDA-Public Use
  Company Number: FK201401787

PATIENT
  Age: 11 Year
  Sex: Female

DRUGS (4)
  1. CYTARABINE (MANUFACTURER UNKNOWN) (CYTARABINE) (CYTARABINE) [Suspect]
     Indication: ACUTE LYMPHOCYTIC LEUKAEMIA
  2. METHOTREXATE (METHOTREXATE) [Concomitant]
  3. HYDROCORTISONE (HYDROCORTISONE) [Concomitant]
  4. DEXAMETHASONE (DEXAMETHASONE) [Concomitant]

REACTIONS (4)
  - Incorrect drug dosage form administered [None]
  - Overdose [None]
  - Platelet count decreased [None]
  - White blood cell disorder [None]
